FAERS Safety Report 8897904 (Version 1)
Quarter: 2012Q4

REPORT INFORMATION
  Report Type: 
  Country: US (occurrence: US)
  Receive Date: 20121108
  Receipt Date: 20121108
  Transmission Date: 20130627
  Serious: No
  Sender: FDA-Public Use
  Company Number: US-AMGEN-USASP2012033253

PATIENT
  Age: 3 Year
  Sex: Male
  Weight: 16.33 kg

DRUGS (6)
  1. ENBREL [Suspect]
     Indication: JUVENILE ARTHRITIS
     Dosage: 13.5 mg, qwk
     Route: 058
  2. METHOTREXATE [Concomitant]
     Dosage: 2.5 mg, UNK
     Route: 048
  3. PREDNISOLONE [Concomitant]
     Dosage: 15 mg, UNK
     Route: 048
  4. MULTIVIT [Concomitant]
     Dosage: UNK
     Route: 048
  5. FOLIC ACID [Concomitant]
     Dosage: UNK
     Route: 048
  6. ZYRTEC ALLERGY [Concomitant]
     Dosage: 10 mg, UNK
     Route: 048

REACTIONS (1)
  - Rash [Unknown]
